FAERS Safety Report 6378759-6 (Version None)
Quarter: 2009Q3

REPORT INFORMATION
  Report Type: 
  Country: None (occurrence: None)
  Receive Date: 20090921
  Receipt Date: 20090915
  Transmission Date: 20100115
  Serious: Yes (Hospitalization)
  Sender: FDA-Public Use
  Company Number: 2009SP025431

PATIENT
  Age: 85 Year
  Sex: Male
  Weight: 68.1756 kg

DRUGS (2)
  1. TEMOZOLOMIDE [Suspect]
     Indication: METASTATIC MALIGNANT MELANOMA
     Dosage: 175 MG;PO
     Route: 048
     Dates: start: 20090901, end: 20090908
  2. CALCITRIOL [Suspect]
     Indication: METASTATIC MALIGNANT MELANOMA
     Dosage: 35 MCG;PO
     Route: 048
     Dates: start: 20090831

REACTIONS (6)
  - CEREBRAL HAEMORRHAGE [None]
  - DROOLING [None]
  - DYSARTHRIA [None]
  - HEADACHE [None]
  - PANCYTOPENIA [None]
  - RASH [None]
